FAERS Safety Report 17148591 (Version 1)
Quarter: 2019Q4

REPORT INFORMATION
  Report Type: Spontaneous
  Country: SE (occurrence: SE)
  Receive Date: 20191213
  Receipt Date: 20191213
  Transmission Date: 20200122
  Serious: Yes (Hospitalization, Other)
  Sender: FDA-Public Use
  Company Number: SE-SA-2019SA339288

PATIENT
  Sex: Male

DRUGS (2)
  1. STILNOCT [Suspect]
     Active Substance: ZOLPIDEM TARTRATE
     Dosage: 100 MG, UNK [20 UNITS OF 5 MG]
     Route: 065
     Dates: start: 20180722, end: 20180722
  2. PROPAVAN [Suspect]
     Active Substance: PROPIOMAZINE
     Dosage: 500 MG, UNK [20 UNITS OF 25 MG]
     Route: 048
     Dates: start: 20180722, end: 20180722

REACTIONS (2)
  - Intentional self-injury [Unknown]
  - Intentional overdose [Unknown]

NARRATIVE: CASE EVENT DATE: 20180722
